FAERS Safety Report 8820926 (Version 2)
Quarter: 2012Q4

REPORT INFORMATION
  Report Type: 
  Country: US (occurrence: US)
  Receive Date: 20121002
  Receipt Date: 20121031
  Transmission Date: 20130627
  Serious: Yes (Death)
  Sender: FDA-Public Use
  Company Number: US-ROCHE-1133990

PATIENT
  Age: 53 Year
  Sex: Female

DRUGS (5)
  1. RITUXAN [Suspect]
     Indication: NON-HODGKIN^S LYMPHOMA
     Route: 042
     Dates: start: 20080115, end: 20080508
  2. VINCRISTINE [Concomitant]
  3. CYTOXAN [Concomitant]
  4. ADRIAMYCIN [Concomitant]
  5. PREDNISOLONE [Concomitant]

REACTIONS (2)
  - Urosepsis [Fatal]
  - Neutropenia [Unknown]
